FAERS Safety Report 16346504 (Version 2)
Quarter: 2019Q2

REPORT INFORMATION
  Report Type: Spontaneous
  Country: US (occurrence: US)
  Receive Date: 20190523
  Receipt Date: 20190531
  Transmission Date: 20190711
  Serious: Yes (Other)
  Sender: FDA-Public Use
  Company Number: US-ALVOGEN-2019-ALVOGEN-099825

PATIENT
  Age: 51 Year
  Sex: Female

DRUGS (1)
  1. NITROFURANTOIN MONOHYDRATE MACROCRYSTALS [Suspect]
     Active Substance: NITROFURANTOIN\NITROFURANTOIN MONOHYDRATE
     Indication: URINARY TRACT INFECTION
     Dates: start: 20190515, end: 20190515

REACTIONS (7)
  - Ligament sprain [Unknown]
  - Pain [Unknown]
  - Hypoaesthesia [Unknown]
  - Visual impairment [Not Recovered/Not Resolved]
  - Loss of consciousness [Unknown]
  - Product substitution issue [Unknown]
  - Fall [Unknown]
